FAERS Safety Report 9120932 (Version 2)
Quarter: 2013Q4

REPORT INFORMATION
  Report Type: Spontaneous
  Country: DK (occurrence: DK)
  Receive Date: 20130226
  Receipt Date: 20131203
  Transmission Date: 20140711
  Serious: Yes (Disabling)
  Sender: FDA-Public Use
  Company Number: DK-GLAXOSMITHKLINE-B0869650A

PATIENT
  Age: 73 Year
  Sex: Male
  Weight: 80 kg

DRUGS (1)
  1. BECONASE [Suspect]
     Indication: SEASONAL ALLERGY
     Dosage: 50MCG PER DAY
     Route: 045
     Dates: start: 20020101, end: 20120420

REACTIONS (1)
  - Chorioretinopathy [Not Recovered/Not Resolved]
